FAERS Safety Report 11095370 (Version 1)
Quarter: 2015Q2

REPORT INFORMATION
  Report Type: Spontaneous
  Country: US (occurrence: US)
  Receive Date: 20150506
  Receipt Date: 20150506
  Transmission Date: 20150821
  Serious: No
  Sender: FDA-Public Use
  Company Number: US-SA-2015SA047503

PATIENT
  Age: 71 Year
  Sex: Male

DRUGS (4)
  1. ELIQUIS [Suspect]
     Active Substance: APIXABAN
     Route: 065
  2. SOLOSTAR [Concomitant]
     Active Substance: DEVICE
  3. APIDRA SOLOSTAR [Suspect]
     Active Substance: INSULIN GLULISINE
     Indication: TYPE 2 DIABETES MELLITUS
     Dosage: DOSE: 10 U MORNING, 13 U LUNCH AND 15 U EVENING
     Route: 065
     Dates: start: 201410, end: 20150407
  4. LEVEMIR [Concomitant]
     Active Substance: INSULIN DETEMIR

REACTIONS (6)
  - Injection site mass [Recovered/Resolved]
  - Ill-defined disorder [Recovered/Resolved]
  - Injection site swelling [Recovered/Resolved]
  - Diarrhoea [Recovered/Resolved]
  - Injection site haemorrhage [Recovered/Resolved]
  - Insomnia [Recovered/Resolved]

NARRATIVE: CASE EVENT DATE: 2014
